FAERS Safety Report 4964858-X (Version None)
Quarter: 2006Q1

REPORT INFORMATION
  Report Type: 
  Country: None (occurrence: None)
  Receive Date: 20060207
  Receipt Date: 20050524
  Transmission Date: 20060701
  Serious: No
  Sender: FDA-Public Use
  Company Number: 244373

PATIENT
  Age: 66 Year
  Sex: Female
  Weight: 102 kg

DRUGS (5)
  1. NOVOLOG [Suspect]
     Indication: INSULIN-REQUIRING TYPE II DIABETES MELLITUS
     Dosage: 45 IU, TID, SUBCUTANEOUS
     Route: 058
     Dates: start: 20050501
  2. LANTUS [Concomitant]
  3. COZAAR (LOSARTATIN POTASSIUM) [Concomitant]
  4. TOPROX XL (METOPROLOL SUCCINATE) [Concomitant]
  5. ASA (ACETYLSALICYCLIC ACID) [Concomitant]

REACTIONS (1)
  - BLOOD GLUCOSE FLUCTUATION [None]
